FAERS Safety Report 10679210 (Version 1)
Quarter: 2014Q4

REPORT INFORMATION
  Report Type: Spontaneous
  Country: DE (occurrence: DE)
  Receive Date: 20141229
  Receipt Date: 20141229
  Transmission Date: 20150529
  Serious: Yes (Life-Threatening, Hospitalization)
  Sender: FDA-Public Use
  Company Number: DE-TEVA-530810GER

PATIENT
  Sex: Male

DRUGS (6)
  1. QUININE [Suspect]
     Active Substance: QUININE
     Route: 048
  2. ARTESUNATE [Suspect]
     Active Substance: ARTESUNATE
     Indication: PLASMODIUM FALCIPARUM INFECTION
     Dosage: 5 DOSES OF 200 MG
     Route: 054
  3. DOXYCYCLINE. [Suspect]
     Active Substance: DOXYCYCLINE
     Indication: PLASMODIUM FALCIPARUM INFECTION
     Route: 048
  4. QUININE [Suspect]
     Active Substance: QUININE
     Indication: PLASMODIUM FALCIPARUM INFECTION
     Dosage: LOADING DOSE 16.4 MG/KG
     Route: 042
  5. ARTESUNATE [Suspect]
     Active Substance: ARTESUNATE
     Dosage: 4.8 MILLIGRAM DAILY;
     Route: 042
  6. QUININE [Suspect]
     Active Substance: QUININE
     Dosage: 24.6 MG/KG DAILY;
     Route: 042

REACTIONS (2)
  - Acute kidney injury [Recovered/Resolved]
  - Haemolysis [Unknown]
